FAERS Safety Report 8971776 (Version 1)
Quarter: 2012Q4

REPORT INFORMATION
  Report Type: Report from Study
  Country: DE (occurrence: DE)
  Receive Date: 20121217
  Receipt Date: 20121217
  Transmission Date: 20130627
  Serious: Yes (Death, Hospitalization, Other)
  Sender: FDA-Public Use
  Company Number: DE-ASTELLAS-2012EU010872

PATIENT
  Age: 64 Year
  Sex: Male

DRUGS (46)
  1. TACROLIMUS SYSTEMIC [Suspect]
     Indication: PROPHYLAXIS AGAINST TRANSPLANT REJECTION
     Dosage: UNK mg, bid
     Route: 048
     Dates: start: 20041106
  2. TACROLIMUS SYSTEMIC [Suspect]
     Dosage: 6 mg, bid
     Route: 048
     Dates: start: 20041122
  3. TACROLIMUS SYSTEMIC [Suspect]
     Dosage: 5 mg, bid
     Route: 048
     Dates: start: 20050615, end: 20051006
  4. TACROLIMUS SYSTEMIC [Suspect]
     Dosage: 3.5 mg, bid
     Route: 048
     Dates: start: 20051007
  5. TACROLIMUS SYSTEMIC [Suspect]
     Dosage: 2.5 mg, bid
     Route: 048
     Dates: start: 20060131
  6. TACROLIMUS SYSTEMIC [Suspect]
     Dosage: 3 mg, bid
     Route: 048
     Dates: start: 20060519
  7. TACROLIMUS SYSTEMIC [Suspect]
     Dosage: 4 mg, bid
     Route: 048
     Dates: start: 20060613
  8. TACROLIMUS SYSTEMIC [Suspect]
     Dosage: 2.5 mg, bid
     Route: 048
     Dates: start: 20061005
  9. DACLIZUMAB [Suspect]
     Indication: PROPHYLAXIS AGAINST TRANSPLANT REJECTION
     Dosage: 170 mg, UID/QD
     Route: 042
     Dates: start: 20040630
  10. DACLIZUMAB [Suspect]
     Dosage: 85 mg, Q2W
     Route: 042
     Dates: start: 20040714
  11. MYCOPHENOLATE MOFETIL [Suspect]
     Indication: PROPHYLAXIS AGAINST TRANSPLANT REJECTION
     Dosage: UNK
     Route: 048
     Dates: start: 20040630
  12. MYCOPHENOLATE MOFETIL [Suspect]
     Dosage: 250 mg, bid
     Route: 048
     Dates: start: 20041013
  13. MYCOPHENOLATE MOFETIL [Suspect]
     Dosage: 500 mg, bid
     Route: 048
     Dates: start: 20060526, end: 20070216
  14. CICLOSPORIN [Suspect]
     Indication: PROPHYLAXIS AGAINST TRANSPLANT REJECTION
     Dosage: 50 mg, bid
     Route: 048
     Dates: start: 20040630, end: 20041103
  15. CICLOSPORIN [Suspect]
     Dosage: 175 mg, UID/QD
     Route: 048
     Dates: start: 20041104, end: 20041105
  16. PREDNISOLONE [Suspect]
     Indication: PROPHYLAXIS AGAINST TRANSPLANT REJECTION
     Dosage: 250 mg, bid
     Route: 042
     Dates: start: 20040630
  17. PREDNISOLONE [Suspect]
     Dosage: 250 mg, UID/QD
     Route: 042
     Dates: start: 20040701
  18. PREDNISOLONE [Suspect]
     Dosage: 250 mg, UID/QD
     Route: 042
     Dates: start: 20041019, end: 20041020
  19. PREDNISOLONE [Suspect]
     Dosage: 75 mg, UID/QD
     Route: 048
     Dates: start: 20040701
  20. PREDNISOLONE [Suspect]
     Dosage: 50 mg, bid
     Route: 048
     Dates: start: 20040702
  21. PREDNISOLONE [Suspect]
     Dosage: 50 mg, UID/QD
     Route: 048
     Dates: start: 20040703, end: 20040706
  22. PREDNISOLONE [Suspect]
     Dosage: 35 mg, Q12 hours
     Route: 048
     Dates: start: 20040707
  23. PREDNISOLONE [Suspect]
     Dosage: 5 mg, UID/QD
     Route: 048
     Dates: start: 20040714, end: 20041018
  24. PREDNISOLONE [Suspect]
     Dosage: 100 mg, UID/QD
     Route: 048
     Dates: start: 20041022, end: 20041022
  25. PREDNISOLONE [Suspect]
     Dosage: 7.5 mg, UID/QD
     Route: 048
     Dates: start: 20041025, end: 20050113
  26. PREDNISOLONE [Suspect]
     Dosage: 5 mg, UID/QD
     Route: 048
     Dates: start: 20050114, end: 20051107
  27. PREDNISOLONE [Suspect]
     Dosage: 10 mg, UID/QD
     Route: 048
     Dates: start: 20051108, end: 20051214
  28. PREDNISOLONE [Suspect]
     Dosage: 5 mg, UID/QD
     Route: 048
     Dates: start: 20051215
  29. PREDNISOLONE [Suspect]
     Dosage: 2.5 mg, UID/QD
     Route: 048
     Dates: start: 20060519
  30. BELOC ZOK [Concomitant]
     Dosage: 100 mg, bid
     Route: 048
     Dates: start: 20040701
  31. BELOC ZOK [Concomitant]
     Dosage: 75 mg, bid
     Route: 048
     Dates: start: 20050114
  32. EUTHYROX [Concomitant]
     Dosage: 75 ug, UID/QD
     Route: 048
     Dates: start: 2001
  33. TROSPIUM CHLORIDE [Concomitant]
     Dosage: 15 mg, tid
     Route: 048
     Dates: start: 20040701
  34. ASPIRIN [Concomitant]
     Dosage: 100 mg, UID/QD
     Route: 048
     Dates: start: 20041028, end: 20050530
  35. ASPIRIN [Concomitant]
     Dosage: 100 mg, UID/QD
     Route: 048
     Dates: start: 20050614
  36. DIGITOXIN [Concomitant]
     Dosage: 0.1 mg, UID/QD
     Route: 048
     Dates: start: 20040702
  37. FUROSEMIDE [Concomitant]
     Dosage: 80 mg, tid
     Route: 048
     Dates: start: 20040703, end: 20040717
  38. FUROSEMIDE [Concomitant]
     Dosage: 30 mg, bid
     Route: 048
     Dates: start: 20040722
  39. FUROSEMIDE [Concomitant]
     Dosage: 20 mg, prn
     Route: 048
     Dates: start: 20040730
  40. FUROSEMIDE [Concomitant]
     Dosage: 40 mg, bid
     Route: 048
     Dates: start: 20041017, end: 20041104
  41. FUROSEMIDE [Concomitant]
     Dosage: 20 mg, UID/QD
     Route: 048
     Dates: start: 20041122, end: 20050113
  42. FUROSEMIDE [Concomitant]
     Dosage: 40 mg, bid
     Route: 048
     Dates: start: 20050615
  43. ISONIAZID [Concomitant]
     Dosage: 300 mg, UID/QD
     Route: 048
     Dates: start: 20040702
  44. CLEXANE [Concomitant]
     Dosage: 0.4 ml, UID/QD
     Route: 058
     Dates: start: 20041122, end: 20050530
  45. CLEXANE [Concomitant]
     Dosage: 0.4 ml, UID/QD
     Route: 058
     Dates: start: 20050614
  46. CLOPIDOGREL [Concomitant]
     Dosage: UNK
     Route: 058
     Dates: start: 20040728

REACTIONS (7)
  - Aortic valve stenosis [Fatal]
  - Acute coronary syndrome [Recovered/Resolved]
  - Hernia obstructive [Recovered/Resolved]
  - Abdominal hernia [Recovered/Resolved]
  - Atrial fibrillation [Unknown]
  - Myocardial infarction [Recovered/Resolved]
  - Post procedural myocardial infarction [Recovered/Resolved]
